FAERS Safety Report 10966705 (Version 1)
Quarter: 2015Q1

REPORT INFORMATION
  Report Type: Spontaneous
  Country: CA (occurrence: CA)
  Receive Date: 20150330
  Receipt Date: 20150330
  Transmission Date: 20150721
  Serious: Yes (Death)
  Sender: FDA-Public Use
  Company Number: CA-TEVA-550332ACC

PATIENT
  Age: 63 Year
  Sex: Male
  Weight: 110 kg

DRUGS (4)
  1. NOVO-MORPHINE SR [Suspect]
     Active Substance: MORPHINE
     Dosage: UNKNOWN FORM STRENGTH
     Route: 065
  2. STATEX TAB 10MG [Suspect]
     Active Substance: MORPHINE SULFATE
     Dosage: UNKNOWN FORM STRENGTH
     Route: 065
  3. STATEX TAB 5MG [Suspect]
     Active Substance: MORPHINE SULFATE
     Dosage: UNKNOWN FORM STRENGTH
     Route: 065
  4. NOVO-MORPHINE SR [Suspect]
     Active Substance: MORPHINE
     Indication: PRODUCT USED FOR UNKNOWN INDICATION
     Dosage: UNKNOWN FORM STRENGTH
     Route: 065

REACTIONS (1)
  - Death [Fatal]
